FAERS Safety Report 9621012 (Version 3)
Quarter: 2013Q4

REPORT INFORMATION
  Report Type: Spontaneous
  Country: US (occurrence: US)
  Receive Date: 20131015
  Receipt Date: 20131219
  Transmission Date: 20140711
  Serious: No
  Sender: FDA-Public Use
  Company Number: US-009507513-1310USA005740

PATIENT
  Sex: Male

DRUGS (1)
  1. COSOPT PF [Suspect]
     Dosage: 2 GTT, BID; ONE DROP IN BOTH EYES TWICE DAY
     Route: 047
     Dates: start: 201210

REACTIONS (4)
  - Drug dose omission [Unknown]
  - Product container issue [Unknown]
  - Accidental exposure to product [Unknown]
  - No adverse event [Unknown]
